FAERS Safety Report 10161305 (Version 2)
Quarter: 2014Q2

REPORT INFORMATION
  Report Type: Spontaneous
  Country: US (occurrence: US)
  Receive Date: 20140508
  Receipt Date: 20140512
  Transmission Date: 20141212
  Serious: No
  Sender: FDA-Public Use
  Company Number: US-GILEAD-2014-0101939

PATIENT
  Age: 48 Year
  Sex: Female

DRUGS (8)
  1. LETAIRIS [Suspect]
     Indication: PULMONARY HYPERTENSION
     Dosage: 5 MG, UNK
     Route: 065
     Dates: start: 20140410, end: 20140507
  2. ATIVAN [Concomitant]
  3. TYVASO [Concomitant]
  4. PAROXETINE [Concomitant]
  5. ZOLPIDEM [Concomitant]
  6. AZATHIOPRINE [Concomitant]
  7. SPIRONOLACTONE [Concomitant]
  8. FUROSEMIDE [Concomitant]

REACTIONS (3)
  - Gait disturbance [Unknown]
  - Swelling [Not Recovered/Not Resolved]
  - Oedema peripheral [Unknown]
